FAERS Safety Report 9251916 (Version 1)
Quarter: 2013Q2

REPORT INFORMATION
  Report Type: Spontaneous
  Country: GB (occurrence: GB)
  Receive Date: 20130424
  Receipt Date: 20130424
  Transmission Date: 20140414
  Serious: Yes (Hospitalization)
  Sender: FDA-Public Use
  Company Number: GB-MYLANLABS-2013S1008126

PATIENT
  Age: 42 Year
  Sex: Female

DRUGS (9)
  1. VENLAFAXINE [Suspect]
     Indication: MAJOR DEPRESSION
     Dosage: 75MG
     Route: 065
  2. LITHIUM [Interacting]
     Indication: MAJOR DEPRESSION
     Dosage: 800MG DAILY; MODIFIED RELEASE; SERUM LEVEL 0.8 MMOL/L
     Route: 065
  3. LITHIUM [Interacting]
     Indication: MAJOR DEPRESSION
     Dosage: SERUM LEVEL 1.0 MMOL/L
     Route: 065
  4. PHENELZINE [Suspect]
     Indication: MAJOR DEPRESSION
     Route: 065
  5. PHENELZINE [Suspect]
     Indication: MAJOR DEPRESSION
     Dosage: FOR 4D
     Route: 065
  6. LYMECYCLINE [Concomitant]
     Indication: ACNE
     Route: 065
  7. ZOPICLONE [Concomitant]
     Indication: INSOMNIA
     Route: 065
  8. LEVOTHYROXINE SODIUM [Concomitant]
     Indication: HEADACHE
     Route: 065
  9. PARACETAMOL [Concomitant]
     Indication: HEADACHE
     Route: 065

REACTIONS (2)
  - Serotonin syndrome [Not Recovered/Not Resolved]
  - Drug interaction [Not Recovered/Not Resolved]
